FAERS Safety Report 13365642 (Version 1)
Quarter: 2017Q1

REPORT INFORMATION
  Report Type: Spontaneous
  Country: US (occurrence: US)
  Receive Date: 20170323
  Receipt Date: 20170323
  Transmission Date: 20170429
  Serious: No
  Sender: FDA-Public Use
  Company Number: US-WARNER CHILCOTT-2016-001502

PATIENT
  Sex: Female
  Weight: 83.9 kg

DRUGS (2)
  1. ESTRACE [Suspect]
     Active Substance: ESTRADIOL
     Indication: ATROPHIC VULVOVAGINITIS
     Dosage: 0.5 G TWICE WEEKLY
     Route: 067
     Dates: start: 2015
  2. CRESTOR [Concomitant]
     Active Substance: ROSUVASTATIN CALCIUM
     Indication: BLOOD CHOLESTEROL INCREASED
     Dosage: UNK UNK, UNKNOWN
     Route: 065

REACTIONS (4)
  - Drug effect incomplete [Not Recovered/Not Resolved]
  - Wrong technique in product usage process [Unknown]
  - Application site discharge [Not Recovered/Not Resolved]
  - Sexual dysfunction [Not Recovered/Not Resolved]
